FAERS Safety Report 17691131 (Version 1)
Quarter: 2020Q2

REPORT INFORMATION
  Report Type: Spontaneous
  Country: FR (occurrence: FR)
  Receive Date: 20200422
  Receipt Date: 20200422
  Transmission Date: 20200714
  Serious: Yes (Other)
  Sender: FDA-Public Use
  Company Number: FR-BRISTOL-MYERS SQUIBB COMPANY-BMS-2020-032155

PATIENT
  Age: 86 Year
  Sex: Male

DRUGS (17)
  1. ELIQUIS [Suspect]
     Active Substance: APIXABAN
     Indication: CEREBROVASCULAR ACCIDENT PROPHYLAXIS
     Dosage: 5 MILLIGRAM, DAILY (1-0-0)
     Route: 048
     Dates: start: 2018
  2. ATORVASTATINE ARROW [Suspect]
     Active Substance: ATORVASTATIN
     Indication: DYSLIPIDAEMIA
     Dosage: 20 MILLIGRAM, DAILY (0-0-2)
     Route: 048
     Dates: start: 2016, end: 20200327
  3. MIANSERINE EG [Suspect]
     Active Substance: MIANSERIN HYDROCHLORIDE
     Indication: DEPRESSION
     Dosage: 30 MILLIGRAM, DAILY (0-0-1)
     Route: 048
     Dates: start: 201806, end: 20200312
  4. VENLAFAXINE [Suspect]
     Active Substance: VENLAFAXINE HYDROCHLORIDE
     Indication: NEURALGIA
     Dosage: 37.5 MILLIGRAM, DAILY (1-0-0)
     Route: 048
     Dates: start: 20120306, end: 20120312
  5. VENLAFAXINE [Suspect]
     Active Substance: VENLAFAXINE HYDROCHLORIDE
     Indication: PRODUCT USED FOR UNKNOWN INDICATION
     Dosage: 75 MILLIGRAM, DAILY (1-0-0)
     Route: 048
     Dates: start: 20200312
  6. LAMOTRIGINE ARROW [Suspect]
     Active Substance: LAMOTRIGINE
     Indication: NEURALGIA
     Dosage: 100 MILLIGRAM, DAILY (2-0-2)
     Route: 048
     Dates: start: 201806, end: 20200312
  7. OXYCODONE MYLAN [Suspect]
     Active Substance: OXYCODONE
     Indication: PRODUCT USED FOR UNKNOWN INDICATION
     Dosage: 5 MILLIGRAM, DAILY (1-0-0)
     Route: 048
     Dates: start: 20200309, end: 20200323
  8. PREGABALINE MYLAN [Suspect]
     Active Substance: PREGABALIN
     Indication: NEURALGIA
     Dosage: 50 MILLIGRAM, DAILY (1-0-1)
     Route: 048
     Dates: start: 20200312, end: 20200315
  9. PREGABALINE MYLAN [Suspect]
     Active Substance: PREGABALIN
     Indication: PRODUCT USED FOR UNKNOWN INDICATION
     Dosage: 100 MILLIGRAM, DAILY (1-0-1)
     Route: 048
     Dates: start: 20200316, end: 20200327
  10. ZAMUDOL LP [Suspect]
     Active Substance: TRAMADOL HYDROCHLORIDE
     Indication: PRODUCT USED FOR UNKNOWN INDICATION
     Dosage: 200 MILLIGRAM, DAILY (2-0-2)
     Route: 048
     Dates: start: 20200312, end: 20200326
  11. CONTRAMAL [Suspect]
     Active Substance: TRAMADOL HYDROCHLORIDE
     Indication: NEURALGIA
     Dosage: 30 DROP, DAILY
     Route: 048
     Dates: start: 201806, end: 20200202
  12. LANSOPRAZOLE MYLAN [Suspect]
     Active Substance: LANSOPRAZOLE
     Indication: GASTRIC ULCER
     Dosage: 30 MILLIGRAM, DAILY (1-0-1)
     Route: 048
     Dates: start: 2016, end: 20200327
  13. DOLIPRANE [Suspect]
     Active Substance: ACETAMINOPHEN
     Indication: PAIN
     Dosage: 3000 MILLIGRAM, DAILY (2-2-2)
     Route: 048
     Dates: start: 2018, end: 20200327
  14. HYDREA [Suspect]
     Active Substance: HYDROXYUREA
     Indication: THROMBOCYTOSIS
     Dosage: 1000 MILLIGRAM, DAILY (0-2-0)
     Route: 048
     Dates: start: 20190830
  15. PREGABALINE MYLAN [Suspect]
     Active Substance: PREGABALIN
     Indication: PRODUCT USED FOR UNKNOWN INDICATION
     Dosage: 100 MILLIGRAM, DAILY (1-0-1)
     Route: 048
     Dates: start: 20200331
  16. ZAMUDOL LP [Suspect]
     Active Substance: TRAMADOL HYDROCHLORIDE
     Indication: NEURALGIA
     Dosage: 200 MILLIGRAM, DAILY (2-0-2)
     Route: 048
     Dates: start: 201906, end: 20200226
  17. OXYCODONE MYLAN [Suspect]
     Active Substance: OXYCODONE
     Indication: PAIN
     Dosage: 20 MILLIGRAM, DAILY (1-0-1)
     Route: 048
     Dates: start: 20200226, end: 20200328

REACTIONS (3)
  - Cholestasis [Recovering/Resolving]
  - Off label use [Unknown]
  - Hypertransaminasaemia [Recovering/Resolving]

NARRATIVE: CASE EVENT DATE: 20200327
